FAERS Safety Report 23713206 (Version 1)
Quarter: 2024Q2

REPORT INFORMATION
  Report Type: Spontaneous
  Country: CN (occurrence: None)
  Receive Date: 20240405
  Receipt Date: 20240405
  Transmission Date: 20240715
  Serious: Yes (Other)
  Sender: FDA-Public Use
  Company Number: 2024A078721

PATIENT
  Age: 27 Year
  Sex: Female
  Weight: 70 kg

DRUGS (1)
  1. BUDESONIDE [Suspect]
     Active Substance: BUDESONIDE
     Indication: Pharyngitis
     Route: 055
     Dates: start: 20220413, end: 20220413

REACTIONS (4)
  - Anaphylactic reaction [Recovering/Resolving]
  - Palpitations [Recovering/Resolving]
  - Hypoaesthesia [Recovering/Resolving]
  - Eyelid sensory disorder [Recovering/Resolving]

NARRATIVE: CASE EVENT DATE: 20220413
